FAERS Safety Report 9549522 (Version 1)
Quarter: 2013Q3

REPORT INFORMATION
  Report Type: Spontaneous
  Country: US (occurrence: None)
  Receive Date: 20130719
  Receipt Date: 20130719
  Transmission Date: 20140515
  Serious: Yes (Hospitalization)
  Sender: FDA-Public Use
  Company Number: 2013BAX000293

PATIENT
  Age: 10 Year
  Sex: Male

DRUGS (11)
  1. CYCLOPHOSPHAMIDE [Suspect]
     Indication: ACUTE LYMPHOCYTIC LEUKAEMIA
     Dates: start: 20121204, end: 20130105
  2. DASATINIB [Suspect]
     Indication: ACUTE LYMPHOCYTIC LEUKAEMIA
     Dosage: 70 MG, (70 MG, 1 IN 1 D), ORAL
     Route: 048
     Dates: start: 20121008
  3. ARA-C [Suspect]
     Indication: ACUTE LYMPHOCYTIC LEUKAEMIA
     Dates: start: 20121130, end: 20121203
  4. 6-MP [Suspect]
     Indication: ACUTE LYMPHOCYTIC LEUKAEMIA
     Dates: start: 20121030, end: 20121126
  5. METHOTREXATE [Suspect]
     Indication: ACUTE LYMPHOCYTIC LEUKAEMIA
     Dates: start: 20130104, end: 20130105
  6. VINCRISTINE [Suspect]
     Indication: ACUTE LYMPHOCYTIC LEUKAEMIA
     Dates: start: 20130105, end: 20130105
  7. VANCOMYCIN (VANCOMYCIN) [Concomitant]
  8. DEXAMETHASONE (DEXAMETHASONE) [Concomitant]
  9. DIPHENHYDRAMIEN (DIPHENHYDRAMINE) [Concomitant]
  10. ONDANSETRON (ONDANSETRON) [Concomitant]
  11. SIMETHICONE (SIMETICONE) [Concomitant]

REACTIONS (2)
  - Febrile neutropenia [None]
  - Blood creatinine increased [None]
